FAERS Safety Report 6420226-5 (Version None)
Quarter: 2009Q4

REPORT INFORMATION
  Report Type: 
  Country: None (occurrence: None)
  Receive Date: 20091029
  Receipt Date: 20091021
  Transmission Date: 20100525
  Serious: Yes (Other)
  Sender: FDA-Public Use
  Company Number: PHHY2009DE45909

PATIENT
  Sex: Female

DRUGS (2)
  1. CGS 20267 T30748+ [Suspect]
     Indication: BREAST CANCER
     Dosage: 2.5 MG, DAILY
     Route: 048
     Dates: start: 20090302
  2. BETA BLOCKING AGENTS [Concomitant]
     Dosage: UNK
     Dates: start: 20090302

REACTIONS (1)
  - RENAL FAILURE [None]
